FAERS Safety Report 11802163 (Version 1)
Quarter: 2015Q4

REPORT INFORMATION
  Report Type: Spontaneous
  Country: US (occurrence: None)
  Receive Date: 20151203
  Receipt Date: 20151203
  Transmission Date: 20160305
  Serious: Yes (Disabling)
  Sender: FDA-Public Use
  Company Number: None

PATIENT
  Age: 58 Year
  Sex: Female
  Weight: 63.6 kg

DRUGS (2)
  1. LEVAQUIN [Suspect]
     Active Substance: LEVOFLOXACIN
     Indication: SINUSITIS
     Dosage: END DATE OF USE GIVEN 01/05/2014
     Dates: start: 20141226
  2. CIPROFLOXACIN 250 MG [Suspect]
     Active Substance: CIPROFLOXACIN
     Indication: URINARY TRACT INFECTION
     Dates: start: 20131205, end: 20131210

REACTIONS (18)
  - Post procedural infection [None]
  - Panic attack [None]
  - Sleep disorder due to general medical condition, insomnia type [None]
  - Tendonitis [None]
  - Bursitis [None]
  - Drug ineffective [None]
  - Acne [None]
  - Depression [None]
  - Weight increased [None]
  - Sinusitis [None]
  - Fatigue [None]
  - Middle insomnia [None]
  - Hypoglycaemia [None]
  - Paraesthesia [None]
  - Blood oestrogen decreased [None]
  - Dental implantation [None]
  - Hypoaesthesia [None]
  - Adrenal disorder [None]

NARRATIVE: CASE EVENT DATE: 20140115
